FAERS Safety Report 11391391 (Version 1)
Quarter: 2015Q3

REPORT INFORMATION
  Report Type: Spontaneous
  Country: IE (occurrence: None)
  Receive Date: 20150813
  Receipt Date: 20150813
  Transmission Date: 20151125
  Serious: Yes (Other)
  Sender: FDA-Public Use
  Company Number: ABR_02338_2015

PATIENT
  Age: 51 Year
  Sex: Female

DRUGS (5)
  1. ATORVASTATIN (ATORVASTATIN (ATORVASTATIN CALCIUM)) [Suspect]
     Active Substance: ATORVASTATIN
     Indication: HYPERCHOLESTEROLAEMIA
  2. RANEXA [Suspect]
     Active Substance: RANOLAZINE
     Indication: CARDIOVASCULAR DISORDER
     Dates: start: 20150619
  3. COCODAMOL [Concomitant]
     Active Substance: ACETAMINOPHEN\CODEINE PHOSPHATE
  4. INNOHEP [Concomitant]
     Active Substance: TINZAPARIN SODIUM
  5. NITROLINGUAL [Suspect]
     Active Substance: NITROGLYCERIN
     Indication: ANGINA PECTORIS
     Route: 060
     Dates: start: 20150719

REACTIONS (2)
  - Coma scale abnormal [None]
  - Asthenia [None]

NARRATIVE: CASE EVENT DATE: 20150719
